FAERS Safety Report 16581017 (Version 7)
Quarter: 2019Q4

REPORT INFORMATION
  Report Type: Report from Study
  Country: US (occurrence: US)
  Receive Date: 20190716
  Receipt Date: 20191226
  Transmission Date: 20200122
  Serious: Yes (Other)
  Sender: FDA-Public Use
  Company Number: US-BAUSCH-BL-2019-018882

PATIENT
  Age: 66 Year
  Sex: Female
  Weight: 67.65 kg

DRUGS (9)
  1. INSULIN [Concomitant]
     Active Substance: INSULIN NOS
     Indication: PRODUCT USED FOR UNKNOWN INDICATION
  2. BUDESONIDE. [Suspect]
     Active Substance: BUDESONIDE
     Indication: COLITIS ULCERATIVE
     Route: 065
     Dates: start: 20171012, end: 20180205
  3. UCERIS [Suspect]
     Active Substance: BUDESONIDE
     Indication: COLITIS ULCERATIVE
     Route: 048
     Dates: start: 20190312, end: 20190506
  4. UCERIS [Suspect]
     Active Substance: BUDESONIDE
     Dosage: SAMPLES FROM PHYSICIAN
     Route: 048
     Dates: start: 201907, end: 2019
  5. XIGDUO XR [Concomitant]
     Active Substance: DAPAGLIFLOZIN PROPANEDIOL\METFORMIN HYDROCHLORIDE
     Indication: PRODUCT USED FOR UNKNOWN INDICATION
     Dosage: 5 MG/1,000 MG
  6. BUDESONIDE. [Suspect]
     Active Substance: BUDESONIDE
     Route: 065
     Dates: start: 20180521, end: 20190311
  7. UCERIS [Suspect]
     Active Substance: BUDESONIDE
     Dosage: RESTARTED
     Route: 048
     Dates: start: 20191030, end: 2019
  8. UCERIS [Suspect]
     Active Substance: BUDESONIDE
     Dosage: RESTARTED
     Route: 048
     Dates: start: 2019
  9. PIOGLITAZONE. [Concomitant]
     Active Substance: PIOGLITAZONE
     Indication: PRODUCT USED FOR UNKNOWN INDICATION

REACTIONS (11)
  - Inflammation [Recovered/Resolved]
  - Therapy cessation [Unknown]
  - Product availability issue [Unknown]
  - Product substitution issue [Unknown]
  - Blood glucose increased [Recovered/Resolved]
  - Symptom recurrence [Recovered/Resolved]
  - Loss of personal independence in daily activities [Recovered/Resolved]
  - Feeling abnormal [Recovered/Resolved]
  - Product supply issue [Unknown]
  - Colitis ulcerative [Recovered/Resolved]
  - Inappropriate schedule of product administration [Unknown]

NARRATIVE: CASE EVENT DATE: 2019
